FAERS Safety Report 9859902 (Version 1)
Quarter: 2014Q1

REPORT INFORMATION
  Report Type: Spontaneous
  Country: US (occurrence: US)
  Receive Date: 20140131
  Receipt Date: 20140131
  Transmission Date: 20141002
  Serious: No
  Sender: FDA-Public Use
  Company Number: US-SUCAMPO PHARMA AMERICAS, INC-SPI201400055

PATIENT
  Sex: Female

DRUGS (1)
  1. AMITIZA [Suspect]
     Indication: CONSTIPATION
     Dosage: UNKNOWN DAILY DOSE
     Route: 048
     Dates: start: 20110122, end: 20131231

REACTIONS (2)
  - Pregnancy [Unknown]
  - No adverse event [Not Recovered/Not Resolved]
